FAERS Safety Report 6306067-8 (Version None)
Quarter: 2009Q3

REPORT INFORMATION
  Report Type: 
  Country: None (occurrence: None)
  Receive Date: 20090812
  Receipt Date: 20090731
  Transmission Date: 20100115
  Serious: Yes (Other)
  Sender: FDA-Public Use
  Company Number: US-JNJFOC-20090800640

PATIENT
  Sex: Female

DRUGS (1)
  1. NUCYNTA [Suspect]
     Indication: ANALGESIA
     Route: 048

REACTIONS (1)
  - SUICIDAL IDEATION [None]
